FAERS Safety Report 19121907 (Version 1)
Quarter: 2021Q2

REPORT INFORMATION
  Report Type: Spontaneous
  Country: US (occurrence: US)
  Receive Date: 20210412
  Receipt Date: 20210412
  Transmission Date: 20210717
  Serious: Yes (Other)
  Sender: FDA-Public Use
  Company Number: None

PATIENT
  Age: 18 Month
  Sex: Female
  Weight: 12.15 kg

DRUGS (2)
  1. KIDS YUM DAILY MULTIVITAMIN WITH IRON [Concomitant]
  2. BABY BUM SPF50 MINERAL SUNSCREEN [Suspect]
     Active Substance: ZINC OXIDE
     Dosage: ?          QUANTITY:3 OUNCE(S);?
     Route: 061
     Dates: start: 20210409, end: 20210409

REACTIONS (3)
  - Urticaria [None]
  - Swelling of eyelid [None]
  - Application site erythema [None]

NARRATIVE: CASE EVENT DATE: 20210410
